FAERS Safety Report 4324837-2 (Version None)
Quarter: 2004Q1

REPORT INFORMATION
  Report Type: 
  Country: None (occurrence: None)
  Receive Date: 20040326
  Receipt Date: 20040318
  Transmission Date: 20041129
  Serious: Yes (Hospitalization)
  Sender: FDA-Public Use
  Company Number: FR-BRISTOL-MYERS SQUIBB COMPANY-12536298

PATIENT
  Age: 52 Year
  Sex: Female
  Weight: 66 kg

DRUGS (4)
  1. COUMADIN [Suspect]
     Indication: ARRHYTHMIA
     Route: 048
     Dates: end: 20030910
  2. SINTROM [Suspect]
     Indication: ARRHYTHMIA
     Route: 048
     Dates: start: 20030910, end: 20030915
  3. ALDALIX [Concomitant]
  4. DIGOXIN [Concomitant]

REACTIONS (3)
  - ACCIDENTAL OVERDOSE [None]
  - GINGIVAL BLEEDING [None]
  - INTERNATIONAL NORMALISED RATIO INCREASED [None]
